FAERS Safety Report 16570187 (Version 1)
Quarter: 2019Q3

REPORT INFORMATION
  Report Type: Spontaneous
  Country: US (occurrence: US)
  Receive Date: 20190715
  Receipt Date: 20190715
  Transmission Date: 20191004
  Serious: No
  Sender: FDA-Public Use
  Company Number: US-TEVA-2019-US-1076377

PATIENT
  Sex: Female

DRUGS (3)
  1. ESTRADIOL. [Suspect]
     Active Substance: ESTRADIOL
     Indication: PRODUCT USED FOR UNKNOWN INDICATION
     Dosage: VAGINAL INSERTS
     Dates: start: 20190625, end: 20190628
  2. VALSARTAN. [Concomitant]
     Active Substance: VALSARTAN
     Dosage: 80MG
  3. METOPROLOL. [Concomitant]
     Active Substance: METOPROLOL
     Dosage: 25 MG

REACTIONS (11)
  - Feeling abnormal [Unknown]
  - Malaise [Unknown]
  - Gait inability [Unknown]
  - Bowel movement irregularity [Unknown]
  - Disturbance in attention [Unknown]
  - Blood pressure increased [Unknown]
  - Nausea [Unknown]
  - Balance disorder [Unknown]
  - Dysstasia [Unknown]
  - Dizziness [Unknown]
  - Impaired driving ability [Unknown]

NARRATIVE: CASE EVENT DATE: 20190629
